FAERS Safety Report 12526032 (Version 1)
Quarter: 2016Q3

REPORT INFORMATION
  Report Type: Spontaneous
  Country: US (occurrence: None)
  Receive Date: 20160701
  Receipt Date: 20160701
  Transmission Date: 20161109
  Serious: No
  Sender: FDA-Public Use
  Company Number: None

PATIENT
  Age: 28 Year
  Sex: Female
  Weight: 60 kg

DRUGS (3)
  1. CEPHALEXIN. [Concomitant]
     Active Substance: CEPHALEXIN
  2. CEPHALEXIN 500 MG AUR [Suspect]
     Active Substance: CEPHALEXIN
     Indication: URINARY TRACT INFECTION
     Route: 048
     Dates: start: 20160625, end: 20160629
  3. PYRIDIUM [Concomitant]
     Active Substance: PHENAZOPYRIDINE

REACTIONS (7)
  - Nausea [None]
  - Vomiting [None]
  - Restlessness [None]
  - Flatulence [None]
  - Abdominal distension [None]
  - Hyperchlorhydria [None]
  - Constipation [None]

NARRATIVE: CASE EVENT DATE: 20160625
